FAERS Safety Report 13830082 (Version 1)
Quarter: 2017Q3

REPORT INFORMATION
  Report Type: Spontaneous
  Country: US (occurrence: US)
  Receive Date: 20170803
  Receipt Date: 20170803
  Transmission Date: 20171127
  Serious: Yes (Hospitalization)
  Sender: FDA-Public Use
  Company Number: US-TEVA-794126USA

PATIENT
  Age: 92 Year
  Sex: Female

DRUGS (1)
  1. FLECAINIDE [Suspect]
     Active Substance: FLECAINIDE
     Indication: SUPRAVENTRICULAR TACHYCARDIA
     Route: 065

REACTIONS (4)
  - Acute kidney injury [Unknown]
  - Electrolyte imbalance [Unknown]
  - Toxicity to various agents [Recovering/Resolving]
  - Metabolic acidosis [Unknown]
